FAERS Safety Report 25226453 (Version 1)
Quarter: 2025Q2

REPORT INFORMATION
  Report Type: Spontaneous
  Country: US (occurrence: US)
  Receive Date: 20250422
  Receipt Date: 20250422
  Transmission Date: 20250716
  Serious: No
  Sender: KYOWA
  Company Number: US-KYOWAKIRIN-2025KK007110

PATIENT

DRUGS (1)
  1. CRYSVITA [Suspect]
     Active Substance: BUROSUMAB-TWZA
     Indication: Product used for unknown indication
     Route: 065

REACTIONS (7)
  - Influenza like illness [Unknown]
  - Neuralgia [Unknown]
  - Migraine [Unknown]
  - Cluster headache [Unknown]
  - Arthralgia [Unknown]
  - Pain [Unknown]
  - Myalgia [Unknown]
